FAERS Safety Report 13287688 (Version 1)
Quarter: 2017Q1

REPORT INFORMATION
  Report Type: Spontaneous
  Country: GB (occurrence: GB)
  Receive Date: 20170302
  Receipt Date: 20170302
  Transmission Date: 20170428
  Serious: Yes (Hospitalization)
  Sender: FDA-Public Use
  Company Number: GB-MYLANLABS-2017M1012473

PATIENT

DRUGS (1)
  1. AMLODIPINE [Suspect]
     Active Substance: AMLODIPINE BESYLATE
     Dates: start: 201612, end: 201612

REACTIONS (3)
  - Dyspnoea [Unknown]
  - Wrong patient received medication [Unknown]
  - Fall [Unknown]

NARRATIVE: CASE EVENT DATE: 20161223
